FAERS Safety Report 7579038-1 (Version None)
Quarter: 2011Q2

REPORT INFORMATION
  Report Type: 
  Country: None (occurrence: None)
  Receive Date: 20110628
  Receipt Date: 20110620
  Transmission Date: 20111010
  Serious: Yes (Hospitalization)
  Sender: FDA-Public Use
  Company Number: PHHY2011GB53947

PATIENT
  Age: 31 Year
  Sex: Male

DRUGS (3)
  1. METHOTREXATE [Suspect]
     Route: 048
     Dates: start: 20100601, end: 20110527
  2. AZATHIOPRINE [Suspect]
     Indication: CROHN'S DISEASE
     Dosage: 25 UG, UNK
     Route: 058
     Dates: start: 20070101, end: 20100513
  3. REMICADE [Suspect]
     Indication: CROHN'S DISEASE
     Route: 042
     Dates: start: 20100412, end: 20100426

REACTIONS (1)
  - T-CELL TYPE ACUTE LEUKAEMIA [None]
